FAERS Safety Report 9747335 (Version 1)
Quarter: 2013Q4

REPORT INFORMATION
  Report Type: Spontaneous
  Country: US (occurrence: US)
  Receive Date: 20131212
  Receipt Date: 20131212
  Transmission Date: 20140711
  Serious: Yes (Hospitalization, Other)
  Sender: FDA-Public Use
  Company Number: US-SUN PHARMACEUTICAL INDUSTRIES LTD-2013SUN05136

PATIENT
  Age: 59 Year
  Sex: Male

DRUGS (3)
  1. BACLOFEN [Suspect]
     Indication: PRODUCT USED FOR UNKNOWN INDICATION
     Dosage: 40 MG, EVERY 6 HRS
     Route: 065
  2. BACLOFEN [Interacting]
     Dosage: 10 MG, EVERY SIX HOURS
     Route: 065
  3. TIZANIDINE HYDROCHLORIDE 2 MG TABLET [Interacting]
     Indication: PRODUCT USED FOR UNKNOWN INDICATION
     Dosage: 6 MG, BED TIME
     Route: 065

REACTIONS (11)
  - Delirium [Recovering/Resolving]
  - Drug interaction [Unknown]
  - Renal failure acute [Recovering/Resolving]
  - Hallucination, visual [Unknown]
  - Drug withdrawal syndrome [Unknown]
  - Overdose [Unknown]
  - Nausea [Recovering/Resolving]
  - Vomiting [Recovering/Resolving]
  - Hypotension [Recovering/Resolving]
  - Muscle rigidity [Recovering/Resolving]
  - Intentional drug misuse [None]
